FAERS Safety Report 5838768-X (Version None)
Quarter: 2008Q3

REPORT INFORMATION
  Report Type: 
  Country: None (occurrence: None)
  Receive Date: 20080808
  Receipt Date: 20080730
  Transmission Date: 20090109
  Serious: Yes (Other)
  Sender: FDA-Public Use
  Company Number: FR-ABBOTT-08P-056-0468820-00

PATIENT
  Sex: Male
  Weight: 73 kg

DRUGS (8)
  1. KALETRA [Suspect]
     Indication: HIV INFECTION
     Route: 048
     Dates: start: 20070911
  2. RIBABUTINE [Suspect]
     Indication: TUBERCULOSIS
     Route: 048
     Dates: start: 20070810
  3. MOXIFLOXACINE [Suspect]
     Indication: TUBERCULOSIS
     Route: 048
     Dates: start: 20070601, end: 20080701
  4. TENOFOVIR DISOPROXIL FUMARATE [Suspect]
     Indication: HIV INFECTION
     Route: 048
     Dates: start: 20070911
  5. INTERFERON ALFA [Concomitant]
     Indication: HUMAN T-CELL LYMPHOTROPIC VIRUS TYPE I INFECTION
     Dosage: 3000000 IU/L
     Dates: start: 19940101
  6. INTERFERON ALFA [Concomitant]
     Indication: LYMPHOMA
  7. LAMIVUDINE + ZIDOVUDINE [Concomitant]
     Indication: HIV INFECTION
     Dates: start: 20070911
  8. ETHAMBUTOL HCL [Concomitant]
     Indication: TUBERCULOSIS
     Dates: start: 20070601

REACTIONS (2)
  - POLYARTHRITIS [None]
  - SYNOVITIS [None]
